FAERS Safety Report 7550728-X (Version None)
Quarter: 2011Q2

REPORT INFORMATION
  Report Type: 
  Country: None (occurrence: None)
  Receive Date: 20110616
  Receipt Date: 20110118
  Transmission Date: 20111010
  Serious: Yes (Hospitalization, Other)
  Sender: FDA-Public Use
  Company Number: US-BAYER-201016275NA

PATIENT
  Age: 16 Year
  Sex: Female
  Weight: 90.703 kg

DRUGS (14)
  1. YASMIN [Suspect]
     Dosage: UNK UNK, UNK
     Route: 048
  2. LEXAPRO [Concomitant]
  3. IBUPROFEN [Concomitant]
     Dosage: 800 MG, UNK
     Route: 048
     Dates: start: 20080124
  4. YAZ [Suspect]
     Indication: MENORRHAGIA
  5. NASONEX [Concomitant]
     Dosage: 50 MCG/24HR, UNK
     Route: 045
     Dates: start: 20071130
  6. LEXAPRO [Concomitant]
     Indication: ANXIETY
  7. YAZ [Suspect]
     Indication: CONTRACEPTION
     Dosage: UNK UNK, UNK
     Route: 048
     Dates: start: 20071127, end: 20090210
  8. LEXAPRO [Concomitant]
     Indication: DEPRESSION
  9. LEXAPRO [Concomitant]
  10. BROMATANE DX [Concomitant]
     Dosage: UNK
     Route: 048
     Dates: start: 20071127
  11. NAPROSYN [Concomitant]
  12. ATIVAN [Concomitant]
  13. LYRICA [Concomitant]
  14. FLEXERIL [Concomitant]

REACTIONS (2)
  - CONVULSION [None]
  - CONVERSION DISORDER [None]
